FAERS Safety Report 16100788 (Version 1)
Quarter: 2019Q1

REPORT INFORMATION
  Report Type: Spontaneous
  Country: US (occurrence: US)
  Receive Date: 20190321
  Receipt Date: 20190321
  Transmission Date: 20190418
  Serious: Yes (Hospitalization)
  Sender: FDA-Public Use
  Company Number: US-AMREGENT-20190489

PATIENT
  Age: 71 Year
  Sex: Male

DRUGS (9)
  1. PROPOFOL. [Concomitant]
     Active Substance: PROPOFOL
     Dosage: UNKNOWN; INDUCTION
     Route: 007
     Dates: start: 2017, end: 2017
  2. PHENYLEPHRINE HCL [Concomitant]
     Active Substance: PHENYLEPHRINE HYDROCHLORIDE
     Dosage: LOW-DOSE
     Route: 042
     Dates: start: 2017, end: 2017
  3. ASPIRIN. [Suspect]
     Active Substance: ASPIRIN
     Dosage: UNKNOWN
     Route: 065
     Dates: start: 2011, end: 2017
  4. ROCURONIUM [Concomitant]
     Active Substance: ROCURONIUM BROMIDE
     Dosage: UNKNOWN; INDUCTION
     Route: 007
     Dates: start: 2017, end: 2017
  5. TRANEXAMIC ACID INJECTION(0517-0960-01) [Suspect]
     Active Substance: TRANEXAMIC ACID
     Dosage: 20 MG/KG
     Route: 042
     Dates: start: 2017, end: 2017
  6. PRASUGREL. [Suspect]
     Active Substance: PRASUGREL
     Dosage: UNKNOWN
     Route: 065
     Dates: start: 2011, end: 2017
  7. ROPIVACAINE. [Concomitant]
     Active Substance: ROPIVACAINE HYDROCHLORIDE
     Dosage: 20 ML BOLUS; ONCE
     Route: 053
     Dates: start: 2017, end: 2017
  8. FENTANYL. [Concomitant]
     Active Substance: FENTANYL
     Dosage: UNKNOWN; INDUCTION
     Route: 007
     Dates: start: 2017, end: 2017
  9. SEVOFLURANE. [Concomitant]
     Active Substance: SEVOFLURANE
     Dosage: UNKNOWN; MAINTENANCE
     Route: 007
     Dates: start: 2017, end: 2017

REACTIONS (5)
  - Vascular stent stenosis [Recovering/Resolving]
  - Atrioventricular block complete [Recovering/Resolving]
  - Product use in unapproved indication [Recovered/Resolved]
  - Acute myocardial infarction [Recovering/Resolving]
  - Coronary artery thrombosis [Recovering/Resolving]

NARRATIVE: CASE EVENT DATE: 2017
